FAERS Safety Report 20604322 (Version 2)
Quarter: 2022Q1

REPORT INFORMATION
  Report Type: Report from Study
  Country: US (occurrence: US)
  Receive Date: 20220316
  Receipt Date: 20220327
  Transmission Date: 20220423
  Serious: No
  Sender: FDA-Public Use
  Company Number: US-SANOFI-01008716

PATIENT
  Age: 74 Year
  Sex: Female

DRUGS (2)
  1. DUPILUMAB [Suspect]
     Active Substance: DUPILUMAB
     Indication: Dermatitis atopic
     Dosage: 600 MG, 1X
     Dates: start: 20220318, end: 20220318
  2. DUPILUMAB [Suspect]
     Active Substance: DUPILUMAB
     Dosage: 300 MG, QOW

REACTIONS (6)
  - Rash [Unknown]
  - Therapeutic response decreased [Unknown]
  - Injection site haemorrhage [Recovered/Resolved]
  - Injection site discolouration [Recovered/Resolved]
  - Injection site extravasation [Recovered/Resolved]
  - Wrong technique in device usage process [Unknown]
